FAERS Safety Report 12514668 (Version 1)
Quarter: 2016Q2

REPORT INFORMATION
  Report Type: Spontaneous
  Country: None (occurrence: None)
  Receive Date: 20160629
  Receipt Date: 20160629
  Transmission Date: 20160815
  Serious: No
  Sender: FDA-Public Use
  Company Number: None

PATIENT
  Age: 58 Year
  Sex: Male

DRUGS (9)
  1. MELATONIN [Concomitant]
     Active Substance: MELATONIN
  2. CLOZAPINE. [Suspect]
     Active Substance: CLOZAPINE
     Route: 048
  3. VENLAFAXINE [Concomitant]
     Active Substance: VENLAFAXINE HYDROCHLORIDE
  4. LISINOPRIL. [Concomitant]
     Active Substance: LISINOPRIL
  5. RISPERIDONE. [Concomitant]
     Active Substance: RISPERIDONE
  6. APAP [Concomitant]
     Active Substance: ACETAMINOPHEN
  7. ALBUTEROL. [Concomitant]
     Active Substance: ALBUTEROL
  8. HYDROCORTISONE. [Concomitant]
     Active Substance: HYDROCORTISONE
  9. GABAPENTIN. [Concomitant]
     Active Substance: GABAPENTIN

REACTIONS (1)
  - C-reactive protein increased [None]

NARRATIVE: CASE EVENT DATE: 20150410
